FAERS Safety Report 5750804-8 (Version None)
Quarter: 2008Q2

REPORT INFORMATION
  Report Type: 
  Country: None (occurrence: None)
  Receive Date: 20080528
  Receipt Date: 20080521
  Transmission Date: 20081010
  Serious: Yes (Hospitalization)
  Sender: FDA-Public Use
  Company Number: A0729028A

PATIENT
  Age: 76 Year
  Sex: Male

DRUGS (11)
  1. AVODART [Suspect]
     Indication: ILL-DEFINED DISORDER
     Dosage: .5MG PER DAY
     Route: 048
     Dates: start: 20080101
  2. CARBOPLATIN [Suspect]
     Dates: start: 20080301, end: 20080301
  3. VEPESID [Suspect]
     Dates: start: 20080101, end: 20080101
  4. EFFEXOR XR [Suspect]
     Indication: DEPRESSION
     Dosage: 37.5MG PER DAY
     Route: 048
     Dates: start: 20080505
  5. CISPLATIN [Suspect]
  6. TAXOTERE [Suspect]
  7. METFORMIN HCL [Concomitant]
  8. ALLOPURINOL [Concomitant]
  9. OXYCODONE HCL [Concomitant]
  10. AMBIEN [Concomitant]
  11. ZANTAC [Concomitant]

REACTIONS (7)
  - ARTHRALGIA [None]
  - DYSKINESIA [None]
  - GAIT DISTURBANCE [None]
  - HEADACHE [None]
  - NAUSEA [None]
  - PAIN IN EXTREMITY [None]
  - VOMITING [None]
